FAERS Safety Report 17980781 (Version 1)
Quarter: 2020Q3

REPORT INFORMATION
  Report Type: Spontaneous
  Country: US (occurrence: US)
  Receive Date: 20200704
  Receipt Date: 20200704
  Transmission Date: 20201103
  Serious: Yes (Disabling, Congenital Anomaly, Other)
  Sender: FDA-Public Use
  Company Number: US-MICRO LABS LIMITED-ML2020-01980

PATIENT

DRUGS (6)
  1. AMITRIPTYLINE [Suspect]
     Active Substance: AMITRIPTYLINE
  2. PARACETAMOL [Suspect]
     Active Substance: ACETAMINOPHEN
  3. DICLOFENAC [Suspect]
     Active Substance: DICLOFENAC
  4. PREDNISOLONE. [Suspect]
     Active Substance: PREDNISOLONE
  5. ALENDRONIC ACID [Suspect]
     Active Substance: ALENDRONIC ACID
  6. LEFLUNOMIDE. [Suspect]
     Active Substance: LEFLUNOMIDE

REACTIONS (5)
  - Foetal exposure during pregnancy [Unknown]
  - Congenital central nervous system anomaly [Unknown]
  - Blindness congenital [Unknown]
  - Premature baby [Unknown]
  - Paralysis [Unknown]
